FAERS Safety Report 25251694 (Version 1)
Quarter: 2025Q2

REPORT INFORMATION
  Report Type: Spontaneous
  Country: US (occurrence: US)
  Receive Date: 20250429
  Receipt Date: 20250429
  Transmission Date: 20250716
  Serious: Yes (Hospitalization, Other)
  Sender: PFIZER
  Company Number: US-PFIZER INC-PV202500050182

PATIENT
  Age: 64 Year
  Sex: Female

DRUGS (1)
  1. IBRANCE [Suspect]
     Active Substance: PALBOCICLIB

REACTIONS (6)
  - Pneumonia [Unknown]
  - Pulmonary fibrosis [Unknown]
  - Alopecia [Unknown]
  - Stomatitis [Unknown]
  - Fatigue [Unknown]
  - Malaise [Unknown]
